FAERS Safety Report 15759200 (Version 1)
Quarter: 2018Q4

REPORT INFORMATION
  Report Type: Report from Study
  Country: RS (occurrence: RS)
  Receive Date: 20181226
  Receipt Date: 20181226
  Transmission Date: 20190205
  Serious: Yes (Other)
  Sender: FDA-Public Use
  Company Number: RS-SUN PHARMACEUTICAL INDUSTRIES LTD-2018RR-194505

PATIENT

DRUGS (3)
  1. ASPIRIN. [Suspect]
     Active Substance: ASPIRIN
     Indication: PRODUCT USED FOR UNKNOWN INDICATION
     Dosage: 100 MILLIGRAM
     Route: 064
  2. NADROPARIN [Suspect]
     Active Substance: NADROPARIN
     Indication: PRODUCT USED FOR UNKNOWN INDICATION
     Dosage: 5700 SC. 1X/DAY FROM 6TH GW
     Route: 064
  3. NADROPARIN [Suspect]
     Active Substance: NADROPARIN
     Dosage: 5700 IU + 3800 IU 2X/DAY - FROM 12TH GESTATIONAL WEEK
     Route: 064

REACTIONS (2)
  - Foetal exposure during pregnancy [Unknown]
  - Foetal growth restriction [Unknown]
